FAERS Safety Report 26022515 (Version 1)
Quarter: 2025Q4

REPORT INFORMATION
  Report Type: Spontaneous
  Country: US (occurrence: US)
  Receive Date: 20251110
  Receipt Date: 20251110
  Transmission Date: 20260118
  Serious: Yes (Other)
  Sender: AMGEN
  Company Number: US-AMGEN-USASP2025218895

PATIENT
  Age: 68 Year
  Sex: Female

DRUGS (4)
  1. PREDNISONE [Suspect]
     Active Substance: PREDNISONE
     Indication: Pemphigoid
     Dosage: 20 MILLIGRAM, QD
     Route: 065
  2. PREDNISONE [Suspect]
     Active Substance: PREDNISONE
     Dosage: 40 MILLIGRAM, QD
     Route: 065
  3. IXEKIZUMAB [Concomitant]
     Active Substance: IXEKIZUMAB
     Indication: Pemphigoid
     Dosage: 160 MILLIGRAM, AT WEEK 0
     Route: 058
  4. IXEKIZUMAB [Concomitant]
     Active Substance: IXEKIZUMAB
     Dosage: 80 MILLIGRAM, AT WEEKS 2, 4, 6, 8, 10, AND 12
     Route: 058

REACTIONS (4)
  - Pemphigoid [Unknown]
  - Pain of skin [Unknown]
  - Musculoskeletal chest pain [Unknown]
  - Off label use [Unknown]
